FAERS Safety Report 23161791 (Version 1)
Quarter: 2023Q4

REPORT INFORMATION
  Report Type: Spontaneous
  Country: ES (occurrence: ES)
  Receive Date: 20231108
  Receipt Date: 20231108
  Transmission Date: 20240110
  Serious: Yes (Other)
  Sender: FDA-Public Use
  Company Number: ES-DENTSPLY-2023SCDP000376

PATIENT
  Age: 5 Year
  Sex: Female

DRUGS (1)
  1. LIDOCAINE HYDROCHLORIDE AND EPINEPHRINE BITARTRATE [Suspect]
     Active Substance: EPINEPHRINE BITARTRATE\LIDOCAINE HYDROCHLORIDE
     Indication: Dental local anaesthesia
     Dosage: UNK DOSE OF XILONIBSA 20 MG/ML + 0.0125 MG/ML, SOLUTION FOR INJECTION IN CARTRIDGE
     Route: 004

REACTIONS (1)
  - Skin necrosis [Recovered/Resolved]
